FAERS Safety Report 4314092-1 (Version None)
Quarter: 2004Q1

REPORT INFORMATION
  Report Type: 
  Country: None (occurrence: None)
  Receive Date: 20040308
  Receipt Date: 20040308
  Transmission Date: 20041129
  Serious: Yes (Life-Threatening, Hospitalization)
  Sender: FDA-Public Use
  Company Number: None

PATIENT
  Age: 44 Year
  Sex: Male
  Weight: 95.2554 kg

DRUGS (3)
  1. ADVAIR DISKUS 500/50 [Suspect]
     Indication: ASTHMA
     Dosage: 2 PUFF 2XD ORAL
     Route: 048
     Dates: start: 20040217, end: 20040303
  2. ADVAIR DISKUS 500/50 [Suspect]
     Indication: LUNG INFECTION
     Dosage: 2 PUFF 2XD ORAL
     Route: 048
     Dates: start: 20040217, end: 20040303
  3. ADVAIR DISKUS 500/50 [Suspect]

REACTIONS (12)
  - ARTHRALGIA [None]
  - ASTHMA [None]
  - CHEST PAIN [None]
  - CHOKING [None]
  - CONDITION AGGRAVATED [None]
  - DYSPNOEA [None]
  - FATIGUE [None]
  - HYPOAESTHESIA [None]
  - LUNG INFECTION [None]
  - MUSCULAR WEAKNESS [None]
  - MYALGIA [None]
  - URTICARIA [None]
